FAERS Safety Report 7777556-4 (Version None)
Quarter: 2011Q3

REPORT INFORMATION
  Report Type: 
  Country: None (occurrence: None)
  Receive Date: 20110926
  Receipt Date: 20110913
  Transmission Date: 20111222
  Serious: No
  Sender: FDA-Public Use
  Company Number: US-B.I. PHARMACEUTICALS,INC./RIDGEFIELD-2011-BP-22151BP

PATIENT
  Sex: Male

DRUGS (5)
  1. MULTAQ [Concomitant]
     Indication: ATRIAL FIBRILLATION
  2. PRADAXA [Suspect]
     Indication: ATRIAL FIBRILLATION
     Dosage: 300 MG
     Route: 048
     Dates: start: 20100101
  3. ASPIRIN [Concomitant]
     Indication: ATRIAL FIBRILLATION
     Dosage: 162 MG
  4. UNSPECIFIED DIURECTIC [Concomitant]
     Indication: ATRIAL FIBRILLATION
  5. ATENOLOL [Concomitant]
     Indication: ATRIAL FIBRILLATION

REACTIONS (2)
  - CONTUSION [None]
  - VEIN DISORDER [None]
